FAERS Safety Report 7796481-6 (Version None)
Quarter: 2011Q4

REPORT INFORMATION
  Report Type: 
  Country: None (occurrence: None)
  Receive Date: 20111005
  Receipt Date: 20110926
  Transmission Date: 20120403
  Serious: No
  Sender: FDA-Public Use
  Company Number: US-BIOGENIDEC-2011BI036818

PATIENT
  Age: 47 Year
  Sex: Female

DRUGS (3)
  1. ZYRTEC [Concomitant]
     Indication: SEASONAL ALLERGY
     Dates: start: 20100101
  2. IBUPROFEN [Concomitant]
     Indication: HEADACHE
  3. AVONEX [Suspect]
     Indication: MULTIPLE SCLEROSIS
     Route: 030
     Dates: start: 20110922

REACTIONS (4)
  - SEASONAL ALLERGY [None]
  - FEELING ABNORMAL [None]
  - HEADACHE [None]
  - DIZZINESS [None]
